FAERS Safety Report 5889222-0 (Version None)
Quarter: 2008Q3

REPORT INFORMATION
  Report Type: 
  Country: None (occurrence: None)
  Receive Date: 20080919
  Receipt Date: 20080909
  Transmission Date: 20090109
  Serious: Yes (Hospitalization)
  Sender: FDA-Public Use
  Company Number: US-ABBOTT-08P-163-0471403-00

PATIENT
  Sex: Male
  Weight: 57 kg

DRUGS (3)
  1. HUMIRA [Suspect]
     Indication: CROHN'S DISEASE
     Route: 058
     Dates: start: 20070726, end: 20080807
  2. PRILOSEC [Concomitant]
     Indication: GASTROOESOPHAGEAL REFLUX DISEASE
     Dates: start: 20050801
  3. SERETIDE [Concomitant]
     Indication: ASTHMA
     Route: 055
     Dates: start: 20070827

REACTIONS (1)
  - CROHN'S DISEASE [None]
